FAERS Safety Report 10592125 (Version 2)
Quarter: 2014Q4

REPORT INFORMATION
  Report Type: Report from Study
  Country: US (occurrence: US)
  Receive Date: 20141119
  Receipt Date: 20141119
  Transmission Date: 20150529
  Serious: Yes (Hospitalization)
  Sender: FDA-Public Use
  Company Number: US-BIOGENIDEC-2014BI116641

PATIENT
  Age: 56 Year
  Sex: Female

DRUGS (1)
  1. TYSABRI [Suspect]
     Active Substance: NATALIZUMAB
     Indication: MULTIPLE SCLEROSIS
     Route: 042
     Dates: start: 20140512

REACTIONS (10)
  - Pyrexia [Recovered/Resolved]
  - Kidney infection [Recovered/Resolved]
  - Seizure [Recovered/Resolved]
  - Gait disturbance [Recovered/Resolved]
  - Cardiac disorder [Not Recovered/Not Resolved]
  - Tremor [Recovered/Resolved]
  - Optic neuritis [Not Recovered/Not Resolved]
  - Sepsis [Recovered/Resolved]
  - Multiple sclerosis relapse [Recovered/Resolved]
  - Blood pressure abnormal [Recovered/Resolved]

NARRATIVE: CASE EVENT DATE: 201410
